FAERS Safety Report 4714528-8 (Version None)
Quarter: 2005Q3

REPORT INFORMATION
  Report Type: 
  Country: None (occurrence: None)
  Receive Date: 20050714
  Receipt Date: 20050531
  Transmission Date: 20060218
  Serious: Yes (Hospitalization)
  Sender: FDA-Public Use
  Company Number: DE-MERCK-0506DEU00038

PATIENT
  Age: 60 Year
  Sex: Male

DRUGS (3)
  1. TRUSOPT [Suspect]
     Indication: GLAUCOMA
     Route: 047
     Dates: start: 20041201
  2. PHENPROCOUMON [Concomitant]
     Route: 065
  3. TRAVOPROST [Concomitant]
     Indication: GLAUCOMA
     Route: 047
     Dates: start: 20030101

REACTIONS (1)
  - KERATOACANTHOMA [None]
